FAERS Safety Report 9697670 (Version 6)
Quarter: 2013Q4

REPORT INFORMATION
  Report Type: Spontaneous
  Country: US (occurrence: US)
  Receive Date: 20131120
  Receipt Date: 20131226
  Transmission Date: 20140711
  Serious: Yes (Other)
  Sender: FDA-Public Use
  Company Number: US-PFIZER INC-2013328656

PATIENT
  Age: 58 Year
  Sex: Female
  Weight: 97.51 kg

DRUGS (3)
  1. LYRICA [Suspect]
     Indication: NEUROPATHY PERIPHERAL
     Dosage: 300 MG, 3X/DAY
     Dates: end: 201311
  2. SOMA [Concomitant]
     Dosage: 350 MG, UNK
  3. OXYCODONE [Concomitant]
     Dosage: UNK

REACTIONS (6)
  - Arthropathy [Unknown]
  - Malaise [Unknown]
  - Pain [Unknown]
  - Discomfort [Unknown]
  - Nerve injury [Unknown]
  - Neuralgia [Unknown]
